FAERS Safety Report 8154617-1 (Version None)
Quarter: 2012Q1

REPORT INFORMATION
  Report Type: 
  Country: None (occurrence: None)
  Receive Date: 20120221
  Receipt Date: 20120213
  Transmission Date: 20120608
  Serious: Yes (Other)
  Sender: FDA-Public Use
  Company Number: PHHY2012US012286

PATIENT
  Age: 47 Year
  Sex: Female

DRUGS (2)
  1. TRIAMCINOLONE [Suspect]
     Indication: BACK PAIN
     Dosage: 80 MG, UNK
  2. RITONAVIR [Interacting]

REACTIONS (7)
  - BLOOD CORTISOL DECREASED [None]
  - LIPOHYPERTROPHY [None]
  - DRUG INTERACTION [None]
  - CUSHING'S SYNDROME [None]
  - SWELLING FACE [None]
  - SKIN STRIAE [None]
  - BLOOD GLUCOSE INCREASED [None]
